FAERS Safety Report 17445272 (Version 2)
Quarter: 2021Q2

REPORT INFORMATION
  Report Type: Spontaneous
  Country: US (occurrence: US)
  Receive Date: 20200221
  Receipt Date: 20210505
  Transmission Date: 20210716
  Serious: No
  Sender: FDA-Public Use
  Company Number: US-PFIZER INC-2020078939

PATIENT
  Age: 71 Year
  Sex: Male

DRUGS (2)
  1. LORBRENA [Suspect]
     Active Substance: LORLATINIB
     Indication: LUNG NEOPLASM MALIGNANT
     Dosage: 100 MG, UNK
  2. LORBRENA [Suspect]
     Active Substance: LORLATINIB
     Indication: SALIVARY GLAND CANCER

REACTIONS (1)
  - Nasopharyngitis [Unknown]
